FAERS Safety Report 6305284-0 (Version None)
Quarter: 2009Q3

REPORT INFORMATION
  Report Type: 
  Country: None (occurrence: None)
  Receive Date: 20090811
  Receipt Date: 20090807
  Transmission Date: 20100115
  Serious: Yes (Life-Threatening)
  Sender: FDA-Public Use
  Company Number: PHEH2009US08991

PATIENT
  Age: 75 Year
  Sex: Female

DRUGS (1)
  1. DIOVAN HCT [Suspect]

REACTIONS (5)
  - FEELING ABNORMAL [None]
  - LIP SWELLING [None]
  - PRURITUS [None]
  - SWOLLEN TONGUE [None]
  - THROAT TIGHTNESS [None]
